FAERS Safety Report 9796939 (Version 1)
Quarter: 2014Q1

REPORT INFORMATION
  Report Type: Spontaneous
  Country: US (occurrence: US)
  Receive Date: 20140105
  Receipt Date: 20140105
  Transmission Date: 20141002
  Serious: No
  Sender: FDA-Public Use
  Company Number: US-009507513-1312USA007414

PATIENT
  Age: 55 Year
  Sex: Female
  Weight: 67.12 kg

DRUGS (5)
  1. VICTRELIS [Suspect]
     Dosage: 800 MG THREE TIMES A DAY (EVERY 7-9 HOURS)
     Route: 048
     Dates: end: 20131105
  2. REBETOL [Suspect]
     Dosage: 200 MG, UNK
     Route: 048
  3. PEGASYS [Suspect]
     Route: 058
  4. KLONOPIN [Concomitant]
     Dosage: 1 MG, UNK
     Route: 048
  5. CELEXA [Concomitant]
     Dosage: 10 MG, UNK
     Route: 048

REACTIONS (2)
  - Headache [Not Recovered/Not Resolved]
  - Alopecia [Not Recovered/Not Resolved]
